FAERS Safety Report 6615313-2 (Version None)
Quarter: 2010Q1

REPORT INFORMATION
  Report Type: 
  Country: None (occurrence: None)
  Receive Date: 20100305
  Receipt Date: 20091104
  Transmission Date: 20100710
  Serious: No
  Sender: FDA-Public Use
  Company Number: A0796233A

PATIENT
  Age: 65 Year
  Sex: Male

DRUGS (3)
  1. REQUIP [Suspect]
     Indication: PARKINSON'S DISEASE
     Route: 048
     Dates: start: 20011025, end: 20051017
  2. SINEMET [Concomitant]
  3. COMTAN [Concomitant]

REACTIONS (1)
  - GAMBLING [None]
